FAERS Safety Report 17608119 (Version 1)
Quarter: 2020Q2

REPORT INFORMATION
  Report Type: Report from Study
  Country: IL (occurrence: IL)
  Receive Date: 20200401
  Receipt Date: 20200401
  Transmission Date: 20200713
  Serious: Yes (Hospitalization, Other)
  Sender: FDA-Public Use
  Company Number: IL-ROCHE-2571210

PATIENT
  Age: 51 Year
  Sex: Male

DRUGS (5)
  1. CLONEX [CLONAZEPAM] [Concomitant]
     Active Substance: CLONAZEPAM
  2. BACLOSAL [Concomitant]
     Active Substance: BACLOFEN
  3. FAMPYRA [Concomitant]
     Active Substance: DALFAMPRIDINE
  4. OCREVUS [Suspect]
     Active Substance: OCRELIZUMAB
     Indication: PRIMARY PROGRESSIVE MULTIPLE SCLEROSIS
     Dosage: CONTINUED
     Route: 042
     Dates: start: 20180416
  5. CEFORAL [CEFALEXIN MONOHYDRATE] [Suspect]
     Active Substance: CEPHALEXIN
     Indication: PRODUCT USED FOR UNKNOWN INDICATION
     Dosage: FOR AROUND 20 DAYS
     Route: 065

REACTIONS (2)
  - Cellulitis [Unknown]
  - Urinary retention [Recovered/Resolved]

NARRATIVE: CASE EVENT DATE: 202001
